FAERS Safety Report 15312561 (Version 1)
Quarter: 2018Q3

REPORT INFORMATION
  Report Type: Spontaneous
  Country: US (occurrence: US)
  Receive Date: 20180814
  Receipt Date: 20180814
  Transmission Date: 20181010
  Serious: Yes (Other)
  Sender: FDA-Public Use
  Company Number: None

PATIENT
  Age: 23 Year
  Sex: Female
  Weight: 53.98 kg

DRUGS (4)
  1. ARMODOFINIL 250MG [Suspect]
     Active Substance: ARMODAFINIL
     Indication: ATTENTION DEFICIT/HYPERACTIVITY DISORDER
     Route: 048
     Dates: start: 2016
  2. ARMODOFINIL 250MG [Suspect]
     Active Substance: ARMODAFINIL
     Indication: PERSISTENT DEPRESSIVE DISORDER
  3. ARMODOFINIL 250MG [Suspect]
     Active Substance: ARMODAFINIL
     Indication: MAJOR DEPRESSION
  4. ARMODOFINIL 250MG [Suspect]
     Active Substance: ARMODAFINIL
     Indication: FATIGUE

REACTIONS (2)
  - Drug effect incomplete [None]
  - Disturbance in attention [None]
